FAERS Safety Report 25372069 (Version 1)
Quarter: 2025Q2

REPORT INFORMATION
  Report Type: Report from Study
  Country: IT (occurrence: IT)
  Receive Date: 20250529
  Receipt Date: 20250529
  Transmission Date: 20250716
  Serious: Yes (Other)
  Sender: CSL BEHRING
  Company Number: IT-BEH-2025207720

PATIENT

DRUGS (3)
  1. HUMAN IMMUNOGLOBULIN G [Suspect]
     Active Substance: HUMAN IMMUNOGLOBULIN G
     Indication: Pericarditis
     Route: 042
  2. COLCHICINE [Concomitant]
     Active Substance: COLCHICINE
     Indication: Pericarditis
  3. ANAKINRA [Concomitant]
     Active Substance: ANAKINRA
     Indication: Pericarditis

REACTIONS (2)
  - Neutropenia [Recovered/Resolved]
  - Off label use [Unknown]
